FAERS Safety Report 4419677-X (Version None)
Quarter: 2004Q3

REPORT INFORMATION
  Report Type: 
  Country: None (occurrence: None)
  Receive Date: 20040804
  Receipt Date: 20040713
  Transmission Date: 20050211
  Serious: Yes (Other)
  Sender: FDA-Public Use
  Company Number: US_0406103802

PATIENT
  Age: 80 Year
  Sex: Female

DRUGS (1)
  1. EVISTA [Suspect]
     Dates: start: 20000101

REACTIONS (5)
  - BODY HEIGHT DECREASED [None]
  - FALL [None]
  - HUMERUS FRACTURE [None]
  - PELVIC FRACTURE [None]
  - REFLEX SYMPATHETIC DYSTROPHY [None]
